FAERS Safety Report 9057373 (Version 2)
Quarter: 2013Q1

REPORT INFORMATION
  Report Type: Spontaneous
  Country: ES (occurrence: ES)
  Receive Date: 20130204
  Receipt Date: 20130308
  Transmission Date: 20140127
  Serious: Yes (Hospitalization)
  Sender: FDA-Public Use
  Company Number: PHHY2013ES008459

PATIENT
  Age: 28 Year
  Sex: Female

DRUGS (18)
  1. METHADONE [Suspect]
     Indication: ANALGESIC THERAPY
     Dosage: 20 MG, Q8H
     Route: 048
  2. KETAMINE [Suspect]
     Indication: ANALGESIC THERAPY
     Dosage: 250 MG IN 100 CC EVERY 24 HOURS
     Route: 058
  3. BACLOFEN [Concomitant]
     Dosage: 10 MG, Q8H
  4. GABAPENTIN [Concomitant]
     Dosage: 900 MG, Q8H
  5. VENLAFAXINE [Concomitant]
     Dosage: 75 MG, AT BREAKFAST/DINNER
  6. PARACETAMOL [Concomitant]
     Dosage: 1 G, Q8H
     Route: 048
  7. MORPHINE [Concomitant]
     Route: 051
  8. MORPHINE [Concomitant]
     Route: 048
  9. KETOROLAC [Concomitant]
     Dosage: 10 MG, Q8H
  10. DEXAMETHASONE [Concomitant]
     Dosage: 4 MG, AT BREAKFAST
  11. PANTOPRAZOLE [Concomitant]
     Dosage: 40 MG, QD
  12. MAGNESIUM HYDROXIDE [Concomitant]
     Dosage: 15 ML, AT BREAKFAST/DINNER
  13. SENNOSIDES A+B [Concomitant]
     Dosage: 10 GTT, AT BREAKFAST/DINNER
  14. FUROSEMIDE [Concomitant]
     Dosage: 40 MG, QD
  15. SPIRONOLACTONE [Concomitant]
     Dosage: 100 MG, QD
  16. HALOPERIDOL [Concomitant]
     Dosage: 1 MG, Q8H
  17. DIAZEPAM [Concomitant]
     Dosage: 5 MG, QD
  18. HEPARIN [Concomitant]
     Route: 058

REACTIONS (15)
  - Cushing^s syndrome [Unknown]
  - Pain [Recovered/Resolved]
  - Constipation [Recovered/Resolved]
  - Somnolence [Recovered/Resolved]
  - Dizziness [Recovered/Resolved]
  - Pulmonary embolism [Unknown]
  - Paraparesis [Unknown]
  - Hypoaesthesia [Unknown]
  - Infrequent bowel movements [Unknown]
  - Influenza [Unknown]
  - Sleep apnoea syndrome [Unknown]
  - Dyspnoea [Unknown]
  - Snoring [Unknown]
  - Hallucination, visual [Recovered/Resolved]
  - Urinary incontinence [Unknown]
